FAERS Safety Report 15602727 (Version 3)
Quarter: 2019Q1

REPORT INFORMATION
  Report Type: Spontaneous
  Country: US (occurrence: US)
  Receive Date: 20181109
  Receipt Date: 20190128
  Transmission Date: 20190417
  Serious: Yes (Other)
  Sender: FDA-Public Use
  Company Number: US-SA-2018SA307083

PATIENT
  Age: 53 Year
  Sex: Female
  Weight: 134.26 kg

DRUGS (25)
  1. ATORVASTATIN [Concomitant]
     Active Substance: ATORVASTATIN
  2. VERAPAMIL [Concomitant]
     Active Substance: VERAPAMIL HYDROCHLORIDE
  3. DOCETAXEL. [Suspect]
     Active Substance: DOCETAXEL
     Dosage: 180 MG, Q3W
     Route: 042
     Dates: start: 20160719, end: 20160719
  4. ALOXI [Concomitant]
     Active Substance: PALONOSETRON HYDROCHLORIDE
     Dosage: 250 MG
     Dates: start: 20160719
  5. DECADRON [DEXAMETHASONE] [Concomitant]
     Dosage: 10 MG
     Dates: start: 20160719
  6. OMEPRAZOLE. [Concomitant]
     Active Substance: OMEPRAZOLE
  7. METFORMIN [Concomitant]
     Active Substance: METFORMIN HYDROCHLORIDE
  8. VENLAFAXINE [Concomitant]
     Active Substance: VENLAFAXINE HYDROCHLORIDE
  9. DIOVAN [Concomitant]
     Active Substance: VALSARTAN
  10. ASPIRIN [ACETYLSALICYLIC ACID] [Concomitant]
     Active Substance: ASPIRIN
  11. VALSARTAN. [Concomitant]
     Active Substance: VALSARTAN
  12. PROMETHAZINE [Concomitant]
     Active Substance: PROMETHAZINE\PROMETHAZINE HYDROCHLORIDE
  13. DOCETAXEL. [Suspect]
     Active Substance: DOCETAXEL
     Indication: BREAST CANCER FEMALE
     Dosage: 180 MG, Q3W
     Route: 042
     Dates: start: 20160503, end: 20160503
  14. CYTOXAN [Concomitant]
     Active Substance: CYCLOPHOSPHAMIDE
     Dosage: 1480 MG
     Dates: start: 20160719
  15. HERCEPTIN [Concomitant]
     Active Substance: TRASTUZUMAB
     Dosage: 830 MG
     Dates: start: 20160719
  16. LEVOTHYROXINE. [Concomitant]
     Active Substance: LEVOTHYROXINE
  17. HYDROXYUREA. [Concomitant]
     Active Substance: HYDROXYUREA
  18. POTASSIUM [Concomitant]
     Active Substance: POTASSIUM
  19. FUROSEMIDE. [Concomitant]
     Active Substance: FUROSEMIDE
  20. HYDROCODONE [Concomitant]
     Active Substance: HYDROCODONE
  21. VITAMIN D [Concomitant]
     Active Substance: CHOLECALCIFEROL
  22. FUROSEMIDE. [Concomitant]
     Active Substance: FUROSEMIDE
  23. NEOSAR [Concomitant]
     Active Substance: CYCLOPHOSPHAMIDE
  24. TORSEMIDE. [Concomitant]
     Active Substance: TORSEMIDE
  25. OXYCODONE [Concomitant]
     Active Substance: OXYCODONE

REACTIONS (2)
  - Alopecia [Recovering/Resolving]
  - Psychological trauma [Unknown]

NARRATIVE: CASE EVENT DATE: 20160517
